FAERS Safety Report 7817745-3 (Version None)
Quarter: 2011Q4

REPORT INFORMATION
  Report Type: 
  Country: None (occurrence: None)
  Receive Date: 20111017
  Receipt Date: 20111006
  Transmission Date: 20120403
  Serious: No
  Sender: FDA-Public Use
  Company Number: JP-JNJFOC-20110811106

PATIENT
  Age: 65 Year
  Sex: Female

DRUGS (3)
  1. REMICADE [Suspect]
     Route: 042
     Dates: start: 20100101
  2. REMICADE [Suspect]
     Indication: RHEUMATOID ARTHRITIS
     Route: 042
     Dates: start: 20080101
  3. METHOTREXATE [Suspect]
     Indication: RHEUMATOID ARTHRITIS
     Route: 048
     Dates: start: 20080101

REACTIONS (2)
  - MYCOBACTERIUM AVIUM COMPLEX INFECTION [None]
  - MYCOBACTERIAL INFECTION [None]
